FAERS Safety Report 24079147 (Version 3)
Quarter: 2024Q3

REPORT INFORMATION
  Report Type: Spontaneous
  Country: JP (occurrence: JP)
  Receive Date: 20240711
  Receipt Date: 20240826
  Transmission Date: 20241017
  Serious: No
  Sender: OTSUKA
  Company Number: JP-OTSUKA-2024_019462

PATIENT
  Age: 89 Year
  Sex: Male

DRUGS (5)
  1. REXULTI [Interacting]
     Active Substance: BREXPIPRAZOLE
     Indication: Neuropsychological symptoms
     Dosage: 2MG/DAY
     Route: 048
     Dates: start: 20240613
  2. REXULTI [Interacting]
     Active Substance: BREXPIPRAZOLE
     Dosage: 1MG/DAY
     Route: 048
     Dates: start: 20240610, end: 20240612
  3. REXULTI [Interacting]
     Active Substance: BREXPIPRAZOLE
     Dosage: UNK
  4. DIOVAN [Interacting]
     Active Substance: VALSARTAN
     Indication: Product used for unknown indication
     Dosage: UNK
     Route: 048
  5. VALPROATE SODIUM [Suspect]
     Active Substance: VALPROATE SODIUM
     Indication: Product used for unknown indication
     Dosage: UNK
     Route: 048

REACTIONS (3)
  - Blister [Recovered/Resolved]
  - Drug interaction [Unknown]
  - Product use in unapproved indication [Unknown]

NARRATIVE: CASE EVENT DATE: 20240101
